FAERS Safety Report 6348648-1 (Version None)
Quarter: 2009Q3

REPORT INFORMATION
  Report Type: 
  Country: None (occurrence: None)
  Receive Date: 20090911
  Receipt Date: 20090811
  Transmission Date: 20100115
  Serious: No
  Sender: FDA-Public Use
  Company Number: US-BAYER-200929693NA

PATIENT
  Sex: Female

DRUGS (6)
  1. CIPROFLAXACIN [Suspect]
     Indication: SINUSITIS
     Dates: start: 20090101
  2. LEVAQUIN [Suspect]
     Indication: DRUG USE FOR UNKNOWN INDICATION
  3. CLINDAMYCIN [Suspect]
     Indication: DRUG USE FOR UNKNOWN INDICATION
  4. AUGMENTIN [Suspect]
     Indication: DRUG USE FOR UNKNOWN INDICATION
  5. PEG-INTRON [Concomitant]
     Dates: start: 20081101
  6. REBETOL [Concomitant]
     Dates: start: 20081101

REACTIONS (4)
  - DRUG HYPERSENSITIVITY [None]
  - HYPOAESTHESIA FACIAL [None]
  - HYPOPHAGIA [None]
  - PARAESTHESIA ORAL [None]
